FAERS Safety Report 14985311 (Version 1)
Quarter: 2018Q2

REPORT INFORMATION
  Report Type: Spontaneous
  Country: US (occurrence: US)
  Receive Date: 20180518
  Receipt Date: 20180518
  Transmission Date: 20180711
  Serious: Yes (Death)
  Sender: FDA-Public Use
  Company Number: None

PATIENT
  Age: 89 Year
  Sex: Male

DRUGS (1)
  1. VELTASSA [Suspect]
     Active Substance: PATIROMER
     Dosage: ?          OTHER FREQUENCY:1 3 TIMES A WEEK;?
     Route: 048
     Dates: start: 20171219

REACTIONS (1)
  - Death [None]

NARRATIVE: CASE EVENT DATE: 20180518
